FAERS Safety Report 16921695 (Version 1)
Quarter: 2019Q4

REPORT INFORMATION
  Report Type: Spontaneous
  Country: ES (occurrence: ES)
  Receive Date: 20191015
  Receipt Date: 20191015
  Transmission Date: 20200122
  Serious: Yes (Other)
  Sender: FDA-Public Use
  Company Number: NVSC2019ES000705

PATIENT
  Age: 12 Year
  Sex: Male

DRUGS (2)
  1. MYCOPHENOLATE [Suspect]
     Active Substance: MYCOPHENOLIC ACID
     Indication: RENAL TRANSPLANT
     Dosage: UNK
     Route: 065
  2. EVEROLIMUS. [Suspect]
     Active Substance: EVEROLIMUS
     Indication: RENAL TRANSPLANT
     Dosage: UNK
     Route: 065

REACTIONS (7)
  - Polyomavirus-associated nephropathy [Unknown]
  - Transplant dysfunction [Unknown]
  - Haematuria [Unknown]
  - Renal disorder [Unknown]
  - BK virus infection [Unknown]
  - Disease recurrence [Unknown]
  - Proteinuria [Unknown]
